FAERS Safety Report 7135732-8 (Version None)
Quarter: 2010Q4

REPORT INFORMATION
  Report Type: 
  Country: None (occurrence: None)
  Receive Date: 20101203
  Receipt Date: 20101117
  Transmission Date: 20110411
  Serious: Yes (Hospitalization, Other)
  Sender: FDA-Public Use
  Company Number: US-ELI_LILLY_AND_COMPANY-US201006007307

PATIENT
  Sex: Female

DRUGS (3)
  1. FORTEO [Suspect]
     Indication: OSTEOPOROSIS
     Dosage: 20 UG, DAILY (1/D)
     Dates: start: 20090408, end: 20100501
  2. CALCIUM [Concomitant]
  3. ACTONEL [Concomitant]
     Dosage: 35 MG, UNKNOWN
     Route: 065
     Dates: start: 20100916

REACTIONS (6)
  - FALL [None]
  - GAIT DISTURBANCE [None]
  - HIP FRACTURE [None]
  - LUNG DISORDER [None]
  - LYMPHADENOPATHY [None]
  - MUSCLE SPASMS [None]
